FAERS Safety Report 9051914 (Version 1)
Quarter: 2013Q1

REPORT INFORMATION
  Report Type: Spontaneous
  Country: CO (occurrence: CO)
  Receive Date: 20130207
  Receipt Date: 20130207
  Transmission Date: 20140127
  Serious: Yes (Death, Hospitalization, Other)
  Sender: FDA-Public Use
  Company Number: CO-AMGEN-COLSP2013008112

PATIENT
  Age: 76 Year
  Sex: Male

DRUGS (8)
  1. ENBREL [Suspect]
     Indication: RHEUMATOID ARTHRITIS
     Dosage: 50 MG, WEEKLY
     Route: 058
     Dates: start: 2011
  2. LOSARTAN [Concomitant]
     Indication: HYPERTENSION
     Dosage: 50 MG, 1X/DAY
     Route: 048
     Dates: start: 2010, end: 20121218
  3. EUTHYROX [Concomitant]
     Indication: HYPOTHYROIDISM
     Dosage: UNK
     Route: 048
     Dates: start: 2010, end: 20121218
  4. CALCITRIOL [Concomitant]
     Dosage: UNK
     Route: 048
     Dates: start: 2010, end: 20121218
  5. CALCIUM [Concomitant]
     Dosage: UNK
     Dates: end: 20121218
  6. VITAMIN C [Concomitant]
     Dosage: UNK
     Route: 065
     Dates: end: 20121218
  7. PREDNISOLON                        /00016201/ [Concomitant]
     Indication: RHEUMATOID ARTHRITIS
     Dosage: 5 MG, UNK
     Dates: start: 2011, end: 20121218
  8. ERYTHROPOIETIN [Concomitant]
     Indication: ANAEMIA
     Dosage: UNK
     Route: 065
     Dates: end: 20121218

REACTIONS (7)
  - Faecal incontinence [Unknown]
  - Hip fracture [Unknown]
  - Headache [Unknown]
  - Arthralgia [Unknown]
  - Fall [Unknown]
  - Pneumonia [Fatal]
  - Convulsion [Unknown]
